FAERS Safety Report 25234846 (Version 1)
Quarter: 2025Q2

REPORT INFORMATION
  Report Type: Spontaneous
  Country: US (occurrence: None)
  Receive Date: 20250423
  Receipt Date: 20250423
  Transmission Date: 20250716
  Serious: Yes (unspecified)
  Sender: FDA-CTU
  Company Number: None

PATIENT

DRUGS (1)
  1. IRON SUCROSE [Suspect]
     Active Substance: IRON SUCROSE
     Route: 042
     Dates: start: 20241101, end: 20241130

REACTIONS (4)
  - Infusion site extravasation [None]
  - Musculoskeletal stiffness [None]
  - Joint stiffness [None]
  - Peripheral swelling [None]

NARRATIVE: CASE EVENT DATE: 20241101
